FAERS Safety Report 13460894 (Version 1)
Quarter: 2017Q2

REPORT INFORMATION
  Report Type: Report from Study
  Country: DE (occurrence: DE)
  Receive Date: 20170420
  Receipt Date: 20170420
  Transmission Date: 20170830
  Serious: Yes (Hospitalization)
  Sender: FDA-Public Use
  Company Number: DE-ROCHE-1922553

PATIENT
  Age: 59 Year
  Sex: Male

DRUGS (2)
  1. METHOTREXATE. [Suspect]
     Active Substance: METHOTREXATE
     Indication: RHEUMATOID ARTHRITIS
     Route: 065
     Dates: end: 201610
  2. RITUXIMAB [Suspect]
     Active Substance: RITUXIMAB
     Indication: RHEUMATOID ARTHRITIS
     Route: 042

REACTIONS (3)
  - Tinea infection [Not Recovered/Not Resolved]
  - Skin ulcer [Not Recovered/Not Resolved]
  - Infective exacerbation of chronic obstructive airways disease [Not Recovered/Not Resolved]

NARRATIVE: CASE EVENT DATE: 20161123
